FAERS Safety Report 5554473-1 (Version None)
Quarter: 2007Q4

REPORT INFORMATION
  Report Type: 
  Country: None (occurrence: None)
  Receive Date: 20071130
  Receipt Date: 20070831
  Transmission Date: 20080405
  Serious: No
  Sender: FDA-Public Use
  Company Number: 2007PV030421

PATIENT
  Age: 43 Year
  Sex: Male

DRUGS (1)
  1. EXENATIDE(EXENATIDE) PEN,DISPOSABLE [Suspect]
     Indication: DRUG USE FOR UNKNOWN INDICATION
     Dosage: 10 UG, SUBCUTANEOUS
     Route: 058

REACTIONS (4)
  - BLOOD GLUCOSE INCREASED [None]
  - INTRAOCULAR PRESSURE INCREASED [None]
  - RETINAL DETACHMENT [None]
  - VISUAL DISTURBANCE [None]
